FAERS Safety Report 21578936 (Version 1)
Quarter: 2022Q4

REPORT INFORMATION
  Report Type: Spontaneous
  Country: US (occurrence: US)
  Receive Date: 20221110
  Receipt Date: 20221110
  Transmission Date: 20230113
  Serious: No
  Sender: FDA-Public Use
  Company Number: US-SA-SAC20221107001569

PATIENT
  Sex: Female

DRUGS (1)
  1. LUMIZYME [Suspect]
     Active Substance: ALGLUCOSIDASE ALFA
     Indication: Glycogen storage disease type II
     Dosage: 800MG, QOW
     Route: 042
     Dates: start: 20190218

REACTIONS (2)
  - Gastroenteritis viral [Unknown]
  - Dehydration [Unknown]

NARRATIVE: CASE EVENT DATE: 20221102
